FAERS Safety Report 24552097 (Version 1)
Quarter: 2024Q4

REPORT INFORMATION
  Report Type: Spontaneous
  Country: GB (occurrence: GB)
  Receive Date: 20241026
  Receipt Date: 20241026
  Transmission Date: 20250115
  Serious: Yes (Other)
  Sender: TEVA
  Company Number: GB-MHRA-MIDB-607582ff-1a44-48e3-820a-5145ca51524e

PATIENT
  Age: 84 Year

DRUGS (9)
  1. ENZALUTAMIDE [Suspect]
     Active Substance: ENZALUTAMIDE
     Route: 065
  2. SENNA [Concomitant]
     Active Substance: SENNA LEAF\SENNOSIDES\SENNOSIDES A AND B
  3. OXYCODONE [Concomitant]
     Active Substance: OXYCODONE
     Dates: end: 20241002
  4. GABAPENTIN [Concomitant]
     Active Substance: GABAPENTIN
  5. TAFLUPROST [Concomitant]
     Active Substance: TAFLUPROST
  6. CALCIUM CARBONATE\VITAMIN D [Concomitant]
     Active Substance: CALCIUM CARBONATE\VITAMIN D
     Dosage: COLECALCIFEROL AND CALCIUM CARBONATE
  7. ASPIRIN [Concomitant]
     Active Substance: ASPIRIN
  8. MESALAMINE [Concomitant]
     Active Substance: MESALAMINE
  9. TAMSULOSIN [Concomitant]
     Active Substance: TAMSULOSIN

REACTIONS (1)
  - Femoral neck fracture [Unknown]
